FAERS Safety Report 11558902 (Version 1)
Quarter: 2015Q3

REPORT INFORMATION
  Report Type: Spontaneous
  Country: US (occurrence: US)
  Receive Date: 20150916
  Receipt Date: 20150916
  Transmission Date: 20151125
  Serious: No
  Sender: FDA-Public Use
  Company Number: US-ELI_LILLY_AND_COMPANY-US200807005951

PATIENT
  Sex: Male

DRUGS (2)
  1. PRAVASTATIN [Concomitant]
     Active Substance: PRAVASTATIN\PRAVASTATIN SODIUM
  2. FORTEO [Suspect]
     Active Substance: TERIPARATIDE
     Dates: start: 200903

REACTIONS (2)
  - Limb discomfort [Unknown]
  - Back pain [Unknown]

NARRATIVE: CASE EVENT DATE: 200807
